FAERS Safety Report 4694071-5 (Version None)
Quarter: 2005Q2

REPORT INFORMATION
  Report Type: 
  Country: None (occurrence: None)
  Receive Date: 20050616
  Receipt Date: 20050603
  Transmission Date: 20051028
  Serious: Yes (Other)
  Sender: FDA-Public Use
  Company Number: 2005084014

PATIENT
  Age: 80 Year
  Sex: Male
  Weight: 68.0396 kg

DRUGS (2)
  1. VIAGRA [Suspect]
     Indication: ERECTILE DYSFUNCTION
     Dosage: 25 MG (25 MG, AS NECESSARY)
  2. ALL OTHER THERAPEUTIC PRODUCTS [Concomitant]

REACTIONS (3)
  - CATARACT [None]
  - CONDITION AGGRAVATED [None]
  - DRUG EFFECT DECREASED [None]
